FAERS Safety Report 16319356 (Version 1)
Quarter: 2019Q2

REPORT INFORMATION
  Report Type: Spontaneous
  Country: US (occurrence: US)
  Receive Date: 20190515
  Receipt Date: 20190515
  Transmission Date: 20190711
  Serious: Yes (Hospitalization, Disabling, Other)
  Sender: FDA-Public Use
  Company Number: None

PATIENT
  Age: 38 Year
  Sex: Female
  Weight: 64.8 kg

DRUGS (1)
  1. DEPO-PROVERA [Suspect]
     Active Substance: MEDROXYPROGESTERONE ACETATE
     Indication: CONTRACEPTION
     Dosage: ?          QUANTITY:1 INJECTION(S);OTHER FREQUENCY:PER 3 MOS;?
     Route: 008

REACTIONS (22)
  - Abdominal discomfort [None]
  - Libido decreased [None]
  - Bone pain [None]
  - HIV infection [None]
  - Headache [None]
  - Pollakiuria [None]
  - Hot flush [None]
  - Vaginal haemorrhage [None]
  - Hypertension [None]
  - Nervousness [None]
  - Vaginal discharge [None]
  - Hysterectomy [None]
  - Pain [None]
  - Constipation [None]
  - Anxiety [None]
  - Arthropathy [None]
  - Back pain [None]
  - Depression [None]
  - Fibromyalgia [None]
  - Abdominal distension [None]
  - Insomnia [None]
  - Muscle disorder [None]

NARRATIVE: CASE EVENT DATE: 20140619
